FAERS Safety Report 12632148 (Version 2)
Quarter: 2016Q3

REPORT INFORMATION
  Report Type: Spontaneous
  Country: US (occurrence: US)
  Receive Date: 20160808
  Receipt Date: 20160808
  Transmission Date: 20161109
  Serious: No
  Sender: FDA-Public Use
  Company Number: US-BEH-2016061982

PATIENT
  Sex: Female
  Weight: 78 kg

DRUGS (24)
  1. LIDOCAINE/PRILOCAINE [Concomitant]
     Active Substance: LIDOCAINE\PRILOCAINE
  2. PREVACID [Concomitant]
     Active Substance: LANSOPRAZOLE
  3. ASPIRIN. [Concomitant]
     Active Substance: ASPIRIN
  4. ATORVASTAIN [Concomitant]
  5. VITAMIN D [Concomitant]
     Active Substance: CHOLECALCIFEROL
  6. MICARDIS [Concomitant]
     Active Substance: TELMISARTAN
  7. HIZENTRA [Suspect]
     Active Substance: HUMAN IMMUNOGLOBULIN G
     Indication: IMMUNODEFICIENCY COMMON VARIABLE
     Route: 058
  8. HIZENTRA [Suspect]
     Active Substance: HUMAN IMMUNOGLOBULIN G
     Route: 058
  9. HIZENTRA [Suspect]
     Active Substance: HUMAN IMMUNOGLOBULIN G
     Route: 058
     Dates: start: 20120116
  10. VERELAN [Concomitant]
     Active Substance: VERAPAMIL HYDROCHLORIDE
  11. METOFORMIN [Concomitant]
  12. HYDROCHLORTHIAZIDE [Concomitant]
     Active Substance: HYDROCHLOROTHIAZIDE
  13. ZANTAC [Concomitant]
     Active Substance: RANITIDINE HYDROCHLORIDE
  14. PLAVIX [Concomitant]
     Active Substance: CLOPIDOGREL BISULFATE
  15. TRICOR [Concomitant]
     Active Substance: FENOFIBRATE
  16. ACETAMINOPHEN. [Concomitant]
     Active Substance: ACETAMINOPHEN
  17. DIPHENHYDRAMINE. [Concomitant]
     Active Substance: DIPHENHYDRAMINE
  18. METOPROLOL. [Concomitant]
     Active Substance: METOPROLOL
  19. FOSAMAX [Concomitant]
     Active Substance: ALENDRONATE SODIUM
  20. ZOLOFT [Concomitant]
     Active Substance: SERTRALINE HYDROCHLORIDE
  21. PREDNISONE. [Concomitant]
     Active Substance: PREDNISONE
  22. TRICOR [Concomitant]
     Active Substance: FENOFIBRATE
  23. WELLBUTRIN [Concomitant]
     Active Substance: BUPROPION HYDROCHLORIDE
  24. EPIPEN [Concomitant]
     Active Substance: EPINEPHRINE

REACTIONS (1)
  - Paronychia [Unknown]
